FAERS Safety Report 13009205 (Version 1)
Quarter: 2016Q4

REPORT INFORMATION
  Report Type: Spontaneous
  Country: KR (occurrence: KR)
  Receive Date: 20161208
  Receipt Date: 20161208
  Transmission Date: 20170207
  Serious: Yes (Other)
  Sender: FDA-Public Use
  Company Number: KR-SCIEGEN PHARMACEUTICALS INC-2016SCILIT00611

PATIENT
  Age: 83 Year
  Sex: Female

DRUGS (3)
  1. CLOPIDOGREL [Suspect]
     Active Substance: CLOPIDOGREL BISULFATE
     Indication: PRODUCT USED FOR UNKNOWN INDICATION
     Dosage: UNK
     Route: 065
  2. PANTOPRAZOLE [Concomitant]
     Active Substance: PANTOPRAZOLE SODIUM
     Indication: PRODUCT USED FOR UNKNOWN INDICATION
     Dosage: UNK
     Route: 065
  3. PANTOPRAZOLE [Concomitant]
     Active Substance: PANTOPRAZOLE SODIUM
     Dosage: 40 MG, QD
     Route: 065

REACTIONS (7)
  - Epigastric discomfort [Recovered/Resolved]
  - Malnutrition [Unknown]
  - Anaemia [Unknown]
  - Melaena [Unknown]
  - Abdominal tenderness [Unknown]
  - Gastrointestinal candidiasis [Unknown]
  - Depression [Unknown]
